FAERS Safety Report 4929330-1 (Version None)
Quarter: 2006Q1

REPORT INFORMATION
  Report Type: 
  Country: None (occurrence: None)
  Receive Date: 20060223
  Receipt Date: 20060130
  Transmission Date: 20060701
  Serious: No
  Sender: FDA-Public Use
  Company Number: US_0506119464

PATIENT
  Age: 40 Year
  Sex: Female

DRUGS (8)
  1. ZYPREXA [Suspect]
     Indication: SCHIZOPHRENIA, PARANOID TYPE
     Dosage: SEE IMAGE
     Route: 048
     Dates: start: 19970110, end: 19970801
  2. ZYPREXA [Suspect]
     Indication: SCHIZOPHRENIA, PARANOID TYPE
     Dosage: SEE IMAGE
     Route: 048
     Dates: start: 19970801, end: 19970911
  3. ZYPREXA [Suspect]
     Indication: SCHIZOPHRENIA, PARANOID TYPE
     Dosage: SEE IMAGE
     Route: 048
     Dates: start: 19970911
  4. ZYPREXA [Suspect]
     Indication: SCHIZOPHRENIA, PARANOID TYPE
     Dosage: SEE IMAGE
     Route: 048
     Dates: start: 20010101
  5. ZYPREXA ZYDIS [Suspect]
     Indication: SCHIZOPHRENIA, PARANOID TYPE
     Dosage: 5 MG, DAILY (1/D), ORAL
     Route: 048
     Dates: start: 20010101
  6. SYMYAX(OLANZAPINE AND FLUOXETINE HYDROCHLORIDE) CAPSULE [Suspect]
     Indication: SCHIZOPHRENIA, PARANOID TYPE
     Dates: start: 20031001, end: 20040401
  7. RISPERDAL /SWE/(RISPERDONE) [Concomitant]
  8. PAXIL [Concomitant]

REACTIONS (10)
  - ACUTE PSYCHOSIS [None]
  - ANAEMIA OF CHRONIC DISEASE [None]
  - BLOOD GLUCOSE INCREASED [None]
  - BLOOD TRIGLYCERIDES INCREASED [None]
  - DIABETES MELLITUS [None]
  - GOITRE [None]
  - HOMICIDAL IDEATION [None]
  - HYPERPROLACTINAEMIA [None]
  - SUICIDAL IDEATION [None]
  - WEIGHT INCREASED [None]
